FAERS Safety Report 4711555-1 (Version None)
Quarter: 2005Q3

REPORT INFORMATION
  Report Type: 
  Country: None (occurrence: None)
  Receive Date: 20050708
  Receipt Date: 20050708
  Transmission Date: 20060218
  Serious: Yes (Hospitalization)
  Sender: FDA-Public Use
  Company Number: None

PATIENT
  Age: 24 Year
  Sex: Male
  Weight: 58.0604 kg

DRUGS (2)
  1. BACTRIM DS [Suspect]
     Indication: PNEUMOCYSTIS JIROVECI PNEUMONIA
     Dosage: SEE IMAGE
     Route: 042
     Dates: start: 20041214, end: 20041217
  2. BACTRIM DS [Suspect]
     Indication: PNEUMOCYSTIS JIROVECI PNEUMONIA
     Dosage: SEE IMAGE
     Route: 042
     Dates: start: 20041217, end: 20041220

REACTIONS (2)
  - PYREXIA [None]
  - RASH [None]
